FAERS Safety Report 20058663 (Version 1)
Quarter: 2021Q4

REPORT INFORMATION
  Report Type: Spontaneous
  Country: US (occurrence: US)
  Receive Date: 20211111
  Receipt Date: 20211111
  Transmission Date: 20220303
  Serious: Yes (Other)
  Sender: FDA-Public Use
  Company Number: US-ABBVIE-21K-163-4152064-00

PATIENT
  Sex: Male

DRUGS (1)
  1. CALCITRIOL [Suspect]
     Active Substance: CALCITRIOL
     Indication: Vitamin supplementation
     Route: 065

REACTIONS (3)
  - Renal tubular necrosis [Not Recovered/Not Resolved]
  - Hypervitaminosis D [Unknown]
  - Hypercalcaemia [Recovering/Resolving]
